FAERS Safety Report 6126178-X (Version None)
Quarter: 2009Q1

REPORT INFORMATION
  Report Type: 
  Country: None (occurrence: None)
  Receive Date: 20090320
  Receipt Date: 20090313
  Transmission Date: 20090719
  Serious: Yes (Other)
  Sender: FDA-Public Use
  Company Number: B0559454A

PATIENT
  Age: 10 Year
  Sex: Male
  Weight: 35 kg

DRUGS (5)
  1. RELENZA [Suspect]
     Indication: INFLUENZA
     Dosage: 10MG TWICE PER DAY
     Route: 055
     Dates: start: 20090206, end: 20090207
  2. ASVERIN [Concomitant]
     Indication: PHARYNGITIS
     Dosage: 40MG PER DAY
     Route: 048
     Dates: start: 20090206
  3. TRANSAMIN [Concomitant]
     Indication: PHARYNGITIS
     Dosage: 500MG PER DAY
     Route: 048
     Dates: start: 20090206
  4. ALLEGRA [Concomitant]
     Indication: PHARYNGITIS
     Dosage: 60MG PER DAY
     Route: 048
     Dates: start: 20090206
  5. MUCODYNE [Concomitant]
     Indication: PHARYNGITIS
     Dosage: 500MG PER DAY
     Route: 048
     Dates: start: 20090206

REACTIONS (3)
  - ABNORMAL BEHAVIOUR [None]
  - DELIRIUM [None]
  - PYREXIA [None]
